FAERS Safety Report 8560516 (Version 3)
Quarter: 2014Q2

REPORT INFORMATION
  Report Type: Report from Study
  Country: CH (occurrence: CH)
  Receive Date: 20120514
  Receipt Date: 20140423
  Transmission Date: 20141212
  Serious: Yes (Hospitalization)
  Sender: FDA-Public Use
  Company Number: CH-ROCHE-1065501

PATIENT
  Age: 81 Year
  Sex: Female

DRUGS (10)
  1. TRASTUZUMAB [Suspect]
     Indication: BREAST CANCER
     Dosage: LOADING DOSE
     Route: 042
     Dates: start: 20051011
  2. TRASTUZUMAB [Suspect]
     Dosage: MAINTENANCE DOSE: LAST DOSE PRIOR TO ADVERSE EVENT, OLIGOARTHRITIS: 13/MAR/2014, COXARTHRITIS: 12/JA
     Route: 042
  3. AMLODIPINE [Concomitant]
     Route: 048
     Dates: start: 20061002
  4. AMLODIPINE [Concomitant]
     Route: 048
  5. SYMBICORT [Concomitant]
     Dosage: 2 PUFFS DAILY
     Route: 065
     Dates: start: 20090924
  6. XARELTO [Concomitant]
     Route: 048
     Dates: start: 20120202
  7. PANTOZOL (SWITZERLAND) [Concomitant]
     Route: 048
     Dates: start: 20111031
  8. ORFEN [Concomitant]
     Route: 065
     Dates: start: 20111031, end: 20120202
  9. COVERSYL [Concomitant]
     Route: 048
  10. NEBILET [Concomitant]
     Route: 048

REACTIONS (2)
  - Arthritis [Recovered/Resolved]
  - Arthritis [Recovered/Resolved]
